FAERS Safety Report 9845914 (Version 1)
Quarter: 2014Q1

REPORT INFORMATION
  Report Type: Spontaneous
  Country: US (occurrence: US)
  Receive Date: 20140127
  Receipt Date: 20140127
  Transmission Date: 20141002
  Serious: No
  Sender: FDA-Public Use
  Company Number: US-PFIZER INC-2014024664

PATIENT
  Age: 56 Year
  Sex: Female
  Weight: 86.17 kg

DRUGS (5)
  1. GABAPENTIN [Suspect]
     Indication: NERVE INJURY
     Dosage: 300 MG, 3X/DAY
     Dates: start: 2011
  2. GABAPENTIN [Suspect]
     Indication: VERTEBRAL OSTEOPHYTE
     Dosage: 600 MG, 3X/DAY
  3. GABAPENTIN [Suspect]
     Dosage: UNK, 3X/DAY
     Dates: end: 2013
  4. LISINOPRIL [Concomitant]
     Indication: HYPERTENSION
     Dosage: 20 MG, 1X/DAY
  5. LISINOPRIL [Concomitant]
     Dosage: 10 MG, 1X/DAY

REACTIONS (4)
  - Off label use [Unknown]
  - Lymphadenitis [Unknown]
  - Lymph node pain [Unknown]
  - Blood cholesterol increased [Unknown]
